APPROVED DRUG PRODUCT: GANTRISIN
Active Ingredient: SULFISOXAZOLE DIOLAMINE
Strength: EQ 400MG BASE/ML
Dosage Form/Route: INJECTABLE;INJECTION
Application: N006917 | Product #001
Applicant: HOFFMANN LA ROCHE INC
Approved: Approved Prior to Jan 1, 1982 | RLD: No | RS: No | Type: DISCN